FAERS Safety Report 5504837-7 (Version None)
Quarter: 2007Q4

REPORT INFORMATION
  Report Type: 
  Country: None (occurrence: None)
  Receive Date: 20071102
  Receipt Date: 20071023
  Transmission Date: 20080405
  Serious: Yes (Other)
  Sender: FDA-Public Use
  Company Number: PHBS2007JP16936

PATIENT
  Age: 21 Year
  Sex: Female

DRUGS (3)
  1. CYCLOSPORINE [Suspect]
     Indication: BONE MARROW TRANSPLANT
     Route: 065
  2. ANTITHYMOCYTE IMMUNOGLOBULIN [Concomitant]
     Indication: BONE MARROW TRANSPLANT
  3. FLUOROURACIL [Concomitant]
     Indication: BONE MARROW TRANSPLANT

REACTIONS (10)
  - ACUTE GRAFT VERSUS HOST DISEASE IN LIVER [None]
  - ALBUMIN URINE PRESENT [None]
  - GLOMERULONEPHRITIS PROLIFERATIVE [None]
  - GLOMERULOSCLEROSIS [None]
  - HYPERCHOLESTEROLAEMIA [None]
  - HYPOALBUMINAEMIA [None]
  - HYPOPROTEINAEMIA [None]
  - NEPHROTIC SYNDROME [None]
  - PROTEINURIA [None]
  - THROMBOSIS [None]
